FAERS Safety Report 9354237 (Version 1)
Quarter: 2013Q2

REPORT INFORMATION
  Report Type: Spontaneous
  Country: IT (occurrence: None)
  Receive Date: 20130613
  Receipt Date: 20130613
  Transmission Date: 20140414
  Serious: Yes (Other)
  Sender: FDA-Public Use
  Company Number: AUR-APL-2013-04820

PATIENT
  Age: 60 Year
  Sex: Male

DRUGS (2)
  1. MIRTAZAPINE [Suspect]
     Indication: INSOMNIA
  2. MIRTAZAPINE [Suspect]
     Indication: DEPRESSIVE SYMPTOM

REACTIONS (1)
  - Restless legs syndrome [None]
